FAERS Safety Report 21232377 (Version 1)
Quarter: 2022Q3

REPORT INFORMATION
  Report Type: Spontaneous
  Country: US (occurrence: None)
  Receive Date: 20220818
  Receipt Date: 20220818
  Transmission Date: 20221026
  Serious: Yes (Hospitalization)
  Sender: FDA-Public Use
  Company Number: None

PATIENT
  Age: 58 Year
  Sex: Female

DRUGS (1)
  1. GLATIRAMER [Suspect]
     Active Substance: GLATIRAMER
     Indication: Multiple sclerosis
     Dosage: INJECT 1 SYRINGE UNDER THE SKIN (SUBCUTANEOUS INJECTION) THREE TIMES PER WEEK AT LEAST 48 HOURS APAR
     Route: 058
     Dates: start: 20220209

REACTIONS (2)
  - Intracranial aneurysm [None]
  - Cardiac aneurysm [None]

NARRATIVE: CASE EVENT DATE: 20220802
